FAERS Safety Report 23469706 (Version 2)
Quarter: 2024Q1

REPORT INFORMATION
  Report Type: Report from Study
  Country: CA (occurrence: CA)
  Receive Date: 20240202
  Receipt Date: 20240228
  Transmission Date: 20240409
  Serious: Yes (Hospitalization)
  Sender: FDA-Public Use
  Company Number: CA-China IPSEN SC-2023-26651

PATIENT
  Age: 62 Year
  Sex: Male

DRUGS (2)
  1. LANREOTIDE ACETATE [Suspect]
     Active Substance: LANREOTIDE ACETATE
     Indication: Carcinoid syndrome
     Route: 058
     Dates: start: 20231122
  2. DEVICE [Suspect]
     Active Substance: DEVICE
     Indication: Carcinoid syndrome

REACTIONS (11)
  - Abdominal pain [Recovering/Resolving]
  - Constipation [Recovered/Resolved]
  - Abdominal pain upper [Recovered/Resolved]
  - Haemorrhoids [Recovering/Resolving]
  - Insomnia [Recovered/Resolved]
  - Infrequent bowel movements [Recovered/Resolved]
  - Frequent bowel movements [Unknown]
  - Abdominal distension [Recovered/Resolved]
  - Abdominal discomfort [Recovered/Resolved]
  - Diarrhoea [Recovered/Resolved]
  - Weight decreased [Unknown]

NARRATIVE: CASE EVENT DATE: 20231123
